FAERS Safety Report 5086761-X (Version None)
Quarter: 2006Q3

REPORT INFORMATION
  Report Type: 
  Country: None (occurrence: None)
  Receive Date: 20060823
  Receipt Date: 20060814
  Transmission Date: 20061208
  Serious: Yes (Hospitalization)
  Sender: FDA-Public Use
  Company Number: CA-JNJFOC-20060103803

PATIENT
  Sex: Female
  Weight: 47 kg

DRUGS (24)
  1. DOXIL [Suspect]
     Route: 042
  2. DOXIL [Suspect]
     Dosage: FREQUENCY NOT SPECIFIED
     Route: 042
  3. DOXIL [Suspect]
     Dosage: FREQUENCY NOT SPECIFIED
     Route: 042
  4. DOXIL [Suspect]
     Dosage: FREQUENCY NOT SPECIFIED
     Route: 042
  5. DOXIL [Suspect]
     Indication: OVARIAN CANCER
     Dosage: FREQUENCY NOT SPECIFIED
     Route: 042
  6. ET743 [Suspect]
     Indication: OVARIAN CANCER
     Dosage: NO DRUG GIVEN
     Route: 042
  7. EPREX [Concomitant]
     Indication: ANAEMIA PROPHYLAXIS
     Route: 058
  8. EFFEXOR XR [Concomitant]
     Indication: HOT FLUSH
     Route: 048
  9. RISPERDAL [Concomitant]
     Indication: DEPRESSION
     Route: 048
  10. BISOPROLOL FUMARATE [Concomitant]
     Indication: MYOCARDIAL ISCHAEMIA
     Route: 048
  11. COLACE [Concomitant]
     Indication: CONSTIPATION PROPHYLAXIS
     Route: 048
  12. FLEXERIL [Concomitant]
     Indication: FIBROMYALGIA
     Route: 048
  13. NORPRAMIN [Concomitant]
     Indication: DEPRESSION
     Route: 048
  14. NEURONTIN [Concomitant]
     Indication: FIBROMYALGIA
     Route: 048
  15. POTASSIUM [Concomitant]
     Indication: MINERAL SUPPLEMENTATION
     Route: 048
  16. ATIVAN [Concomitant]
     Indication: ANXIETY
     Route: 048
  17. FERODAN [Concomitant]
     Indication: ANAEMIA PROPHYLAXIS
     Route: 048
  18. VITAMIN B6 [Concomitant]
     Indication: PROPHYLAXIS
     Route: 048
  19. PROCHLORPERAZINE [Concomitant]
     Indication: PROPHYLAXIS OF NAUSEA AND VOMITING
     Route: 048
  20. BENADRYL [Concomitant]
     Indication: PROPHYLAXIS
     Dosage: 50 MG ON DAYS 1-28 OF CHEMOTHERAPY CYCLE
     Route: 042
  21. PANTOPRAZOLE SODIUM [Concomitant]
     Route: 048
  22. DURAGESIC-100 [Concomitant]
     Indication: FIBROMYALGIA
     Route: 062
  23. DALTEPARINE [Concomitant]
     Route: 058
  24. DEXAMETHASONE [Concomitant]
     Indication: PROPHYLACTIC CHEMOTHERAPY
     Route: 042

REACTIONS (3)
  - NEUTROPENIA [None]
  - SUBILEUS [None]
  - VENA CAVA THROMBOSIS [None]
